FAERS Safety Report 4759471-3 (Version None)
Quarter: 2005Q3

REPORT INFORMATION
  Report Type: 
  Country: None (occurrence: None)
  Receive Date: 20050831
  Receipt Date: 20050818
  Transmission Date: 20060218
  Serious: Yes (Life-Threatening)
  Sender: FDA-Public Use
  Company Number: MK200508-0267-1

PATIENT
  Age: 72 Year
  Sex: Male

DRUGS (79)
  1. NEUTROSPEC [Suspect]
     Indication: PYREXIA
     Dosage: 20 MCI, ONE TIME, IV
     Route: 042
     Dates: start: 20050818, end: 20050818
  2. ZOLOFT [Concomitant]
  3. ZOCOR [Concomitant]
  4. BETAPACE [Concomitant]
  5. TETRACYCLINE [Concomitant]
  6. NEBCIN [Concomitant]
  7. TORADOL [Concomitant]
  8. LEVAQUIN [Concomitant]
  9. EPIPEN [Concomitant]
  10. LEXAPRO [Concomitant]
  11. DOBUTREX [Concomitant]
  12. DIGIBIND [Concomitant]
  13. DARVOCET-N 100 [Concomitant]
  14. TAGAMET [Concomitant]
  15. KEFLEX [Concomitant]
  16. PHOSLO [Concomitant]
  17. ANCEF [Concomitant]
  18. ZITHROMAX [Concomitant]
  19. LIPITOR [Concomitant]
  20. COREG [Concomitant]
  21. QUINAMM [Concomitant]
  22. RENAGEL [Concomitant]
  23. UNASYN [Concomitant]
  24. PRIMAXIN ADVANTAGE [Concomitant]
  25. VISTARIL [Concomitant]
  26. DILAUDID [Concomitant]
  27. VICODIN [Concomitant]
  28. LORTAB [Concomitant]
  29. APRESLINE [Concomitant]
  30. HEPARIN [Concomitant]
  31. HUMAN INSULIN [Concomitant]
  32. TALWIN [Concomitant]
  33. ATIVAN [Concomitant]
  34. COZAAR [Concomitant]
  35. PEPCID [Concomitant]
  36. INAPSINE [Concomitant]
  37. INTROPIN [Concomitant]
  38. PERSANTINE [Concomitant]
  39. BENADRYL [Concomitant]
  40. LANOXIN [Concomitant]
  41. CIPROFLOXACIN HCL [Concomitant]
  42. CATAPREX [Concomitant]
  43. PLAVIX [Concomitant]
  44. ROCALTROL [Concomitant]
  45. ZYRTEC [Concomitant]
  46. ALBUTEROL [Concomitant]
  47. VENTOLIN [Concomitant]
  48. AUGMENTIN '125' [Concomitant]
  49. POLYCILLIN [Concomitant]
  50. V-CILLIN [Concomitant]
  51. KENALOG [Concomitant]
  52. GARAMYCIN [Concomitant]
  53. GLUCERNA [Concomitant]
  54. GOLYTELY [Concomitant]
  55. OSMITROL [Concomitant]
  56. REGLAN [Concomitant]
  57. NIFEREX [Concomitant]
  58. ZAROXOLYN [Concomitant]
  59. LASIX [Concomitant]
  60. VASOTEC RPD [Concomitant]
  61. SINCEQUAN [Concomitant]
  62. ANZEMET [Concomitant]
  63. LOPRESSOR [Concomitant]
  64. PROCARDIA XL [Concomitant]
  65. CARDIZEM [Concomitant]
  66. TRIDIL [Concomitant]
  67. PAPVERINE [Concomitant]
  68. MAXIPIME [Concomitant]
  69. AMINOPHYLLINE [Concomitant]
  70. CEFIZOX [Concomitant]
  71. KAYEXALATE [Concomitant]
  72. TENORMIN [Concomitant]
  73. ZYLOPRIM [Concomitant]
  74. ROCEPHIN [Concomitant]
  75. VANCOLED [Concomitant]
  76. VANCOCIN HCL [Concomitant]
  77. CALAN [Concomitant]
  78. CORTEF [Concomitant]
  79. ISUPREL [Concomitant]

REACTIONS (2)
  - HEART RATE DECREASED [None]
  - HYPOTENSION [None]
